FAERS Safety Report 15097874 (Version 1)
Quarter: 2018Q3

REPORT INFORMATION
  Report Type: Spontaneous
  Country: US (occurrence: US)
  Receive Date: 20180702
  Receipt Date: 20180702
  Transmission Date: 20181010
  Serious: No
  Sender: FDA-Public Use
  Company Number: US-PFM-2018-00656

PATIENT

DRUGS (1)
  1. HEMANGEOL [Suspect]
     Active Substance: PROPRANOLOL HYDROCHLORIDE
     Indication: INFANTILE HAEMANGIOMA
     Dosage: 0.9 ML, BID (2/DAY) WITH FOOD
     Route: 048
     Dates: start: 20180108, end: 20180110

REACTIONS (2)
  - Flushing [Recovered/Resolved]
  - Decreased appetite [Recovered/Resolved]
